FAERS Safety Report 4412174-7 (Version None)
Quarter: 2004Q2

REPORT INFORMATION
  Report Type: 
  Country: None (occurrence: None)
  Receive Date: 20040630
  Receipt Date: 20040510
  Transmission Date: 20050107
  Serious: No
  Sender: FDA-Public Use
  Company Number: 04P-163-0260082-00

PATIENT
  Age: 51 Year
  Sex: Female
  Weight: 60.3284 kg

DRUGS (9)
  1. HUMIRA [Suspect]
     Indication: RHEUMATOID ARTHRITIS
     Dosage: SEE IMAGE
     Route: 058
     Dates: start: 20040301, end: 20040503
  2. HUMIRA [Suspect]
     Indication: RHEUMATOID ARTHRITIS
     Dosage: SEE IMAGE
     Route: 058
     Dates: start: 20040504
  3. RANITIDINE HYDROCHLORIDE [Concomitant]
  4. ASCORBIC ACID [Concomitant]
  5. IRON [Concomitant]
  6. MULTI-VITAMINS [Concomitant]
  7. NAPROXEN SODIUM [Concomitant]
  8. HYDROCODONE [Concomitant]
  9. IRON [Concomitant]

REACTIONS (1)
  - DRUG EFFECT DECREASED [None]
